FAERS Safety Report 9960288 (Version 1)
Quarter: 2014Q1

REPORT INFORMATION
  Report Type: Report from Study
  Country: US (occurrence: US)
  Receive Date: 20140305
  Receipt Date: 20140305
  Transmission Date: 20141002
  Serious: No
  Sender: FDA-Public Use
  Company Number: US-ABBVIE-13P-163-1101453-00

PATIENT
  Age: 59 Year
  Sex: Female

DRUGS (6)
  1. HUMIRA [Suspect]
     Indication: CROHN^S DISEASE
     Dates: start: 20120830
  2. APRISO [Concomitant]
     Indication: CROHN^S DISEASE
  3. DICYCLOMINE [Concomitant]
     Indication: ABDOMINAL PAIN
     Dosage: 4 A DAY
  4. PRAVASTATIN [Concomitant]
     Indication: BLOOD PRESSURE
     Dosage: 1 A DAY
  5. LISINOPRIL [Concomitant]
     Indication: BLOOD CHOLESTEROL
     Dosage: 1 A DAY
  6. AZATHIOPRINE [Concomitant]
     Indication: CROHN^S DISEASE
     Dosage: 3 A DAY

REACTIONS (2)
  - Injection site extravasation [Recovered/Resolved]
  - Injection site pain [Recovered/Resolved]
